FAERS Safety Report 7744710-7 (Version None)
Quarter: 2011Q3

REPORT INFORMATION
  Report Type: 
  Country: None (occurrence: None)
  Receive Date: 20110912
  Receipt Date: 20110907
  Transmission Date: 20111222
  Serious: Yes (Hospitalization)
  Sender: FDA-Public Use
  Company Number: US-GILEAD-2011-0043472

PATIENT
  Age: 38 Year
  Sex: Female

DRUGS (2)
  1. LETAIRIS [Suspect]
     Indication: PRODUCT USED FOR UNKNOWN INDICATION
     Route: 048
     Dates: start: 20110813
  2. EPOPROSTENOL SODIUM [Concomitant]

REACTIONS (5)
  - CHEST PAIN [None]
  - NAUSEA [None]
  - MUSCULOSKELETAL PAIN [None]
  - PAIN IN JAW [None]
  - VOMITING [None]
